FAERS Safety Report 23822330 (Version 1)
Quarter: 2024Q2

REPORT INFORMATION
  Report Type: Spontaneous
  Country: IT (occurrence: IT)
  Receive Date: 20240506
  Receipt Date: 20240506
  Transmission Date: 20240715
  Serious: Yes (Other)
  Sender: FDA-Public Use
  Company Number: IT-TAKEDA-2024TUS042036

PATIENT
  Age: 57 Year
  Sex: Female

DRUGS (1)
  1. PONATINIB [Suspect]
     Active Substance: PONATINIB
     Indication: Acute lymphocytic leukaemia
     Dosage: UNK
     Route: 065

REACTIONS (5)
  - Acute lymphocytic leukaemia recurrent [Unknown]
  - Pancytopenia [Unknown]
  - Haemophagocytic lymphohistiocytosis [Unknown]
  - Stenosis [Unknown]
  - Renal artery stenosis [Unknown]
